FAERS Safety Report 15361737 (Version 2)
Quarter: 2018Q4

REPORT INFORMATION
  Report Type: Spontaneous
  Country: US (occurrence: US)
  Receive Date: 20180907
  Receipt Date: 20181003
  Transmission Date: 20190204
  Serious: Yes (Other)
  Sender: FDA-Public Use
  Company Number: US-PFIZER INC-2018271415

PATIENT
  Age: 62 Year
  Sex: Female
  Weight: 70 kg

DRUGS (15)
  1. ZOLPIDEM TARTRATE. [Concomitant]
     Active Substance: ZOLPIDEM TARTRATE
     Dosage: 10 MG, AS NEEDED (EVERY DAY AT BEDTIME)
     Route: 048
     Dates: end: 20180409
  2. XELJANZ [Suspect]
     Active Substance: TOFACITINIB CITRATE
     Indication: COLITIS ULCERATIVE
     Dosage: 10 MG, 2X/DAY (30 DAYS)
     Route: 048
     Dates: start: 2018
  3. MESALAMINE. [Concomitant]
     Active Substance: MESALAMINE
     Dosage: 2.4 G, 2X/DAY (2 TABLETS 2 TIMES EVERY DAY WITH A MEAL)
     Route: 048
     Dates: start: 20180212, end: 20180409
  4. TRIAMCINOLONE ACETONIDE. [Concomitant]
     Active Substance: TRIAMCINOLONE ACETONIDE
     Dosage: 0.1 %, 2X/DAY (THIN LAYER TO THE AFFECTED AREAS)
     Route: 061
  5. PREDNISONE. [Concomitant]
     Active Substance: PREDNISONE
     Dosage: 10 MG, 4X/DAY (4 TABLETS EVERY DAY)
     Route: 048
  6. PREDNISONE. [Concomitant]
     Active Substance: PREDNISONE
     Dosage: 30 MG, DAILY (TAPERED TO 30MG/DAY)
  7. XELJANZ [Suspect]
     Active Substance: TOFACITINIB CITRATE
     Indication: POLYARTHRITIS
     Dosage: 10 MG, 2X/DAY
     Route: 048
     Dates: start: 201807
  8. SUPREP BOWEL PREP [Concomitant]
     Active Substance: MAGNESIUM SULFATE\POTASSIUM SULFATE\SODIUM SULFATE
     Dosage: UNK (SODIUM SULFATE 17.5 GRAM, POTASSIUM SULFATE 3.13 GRAM, MAGNESIUM SULFATE 1.6 GRAM) AS DIRECTED
     Dates: end: 20160920
  9. XELJANZ [Suspect]
     Active Substance: TOFACITINIB CITRATE
     Indication: ARTHROPATHY
  10. TRAMADOL HCL [Concomitant]
     Active Substance: TRAMADOL HYDROCHLORIDE
     Dosage: 50 MG, AS NEEDED (EVERY 6 HOURS)
     Route: 048
     Dates: end: 20180222
  11. PREDNISONE. [Concomitant]
     Active Substance: PREDNISONE
     Dosage: 20 MG, DAILY (CONTINUED TAPER AT 5MG WEEKLY TO OFF)
     Route: 048
  12. IBUPROFEN. [Concomitant]
     Active Substance: IBUPROFEN
     Dosage: UNK
     Dates: end: 20180409
  13. MESALAMINE. [Concomitant]
     Active Substance: MESALAMINE
     Dosage: 60 MILLILITRE EVERY DAY AT BEDTIME
     Route: 054
     Dates: end: 20180409
  14. HUMIRA [Concomitant]
     Active Substance: ADALIMUMAB
     Dosage: 0.8 ML, 2X/WEEK (40MG/0.8ML)
     Route: 058
  15. HUMIRA [Concomitant]
     Active Substance: ADALIMUMAB
     Dosage: 80 MG, UNK (SECOND INDUCTION DOSE THEN WILL GO INTO MAINTENANCE DOSING)
     Route: 058

REACTIONS (3)
  - Intestinal obstruction [Unknown]
  - Abdominal pain [Recovered/Resolved]
  - Nausea [Unknown]
